FAERS Safety Report 8458613-6 (Version None)
Quarter: 2012Q2

REPORT INFORMATION
  Report Type: 
  Country: None (occurrence: None)
  Receive Date: 20120622
  Receipt Date: 20110707
  Transmission Date: 20120825
  Serious: Yes (Hospitalization, Disabling, Other)
  Sender: FDA-Public Use
  Company Number: CA-NOVOPROD-331469

PATIENT
  Age: 54 Year
  Sex: Male
  Weight: 90 kg

DRUGS (19)
  1. ACETAMINOPHEN [Concomitant]
  2. ASPIRIN [Concomitant]
  3. MORPHIN                            /00036302/ [Concomitant]
  4. HEPARIN SODIUM [Concomitant]
  5. METOPROLOL [Concomitant]
  6. LACTULOSE [Concomitant]
  7. LANSOPRAZOLE [Concomitant]
  8. ONDANSETRON [Concomitant]
  9. BISACODYL [Concomitant]
  10. FENTANYL [Concomitant]
  11. MAGNESIUM SULFATE [Concomitant]
  12. PHOSPHATE                          /01318702/ [Concomitant]
  13. NIASTASE [Suspect]
     Indication: PRODUCT USED FOR UNKNOWN INDICATION
     Dosage: 14.8 MG, QD
     Route: 042
  14. PANTOPRAZOLE [Concomitant]
  15. POTASSIUM CHLORIDE [Concomitant]
  16. TYLENOL W/ CODEINE [Concomitant]
  17. CALCIUM GLUCONATE [Concomitant]
  18. CEFAZOLIN [Concomitant]
     Dosage: UNK
  19. MIDAZOLAM [Concomitant]

REACTIONS (1)
  - CEREBROVASCULAR ACCIDENT [None]
